FAERS Safety Report 8323313-X (Version None)
Quarter: 2012Q2

REPORT INFORMATION
  Report Type: 
  Country: None (occurrence: None)
  Receive Date: 20120430
  Receipt Date: 20120424
  Transmission Date: 20120825
  Serious: No
  Sender: FDA-Public Use
  Company Number: US-PFIZER INC-2012102179

PATIENT
  Sex: Female
  Weight: 81.633 kg

DRUGS (2)
  1. ZOLOFT [Concomitant]
     Indication: DEPRESSION
     Dosage: 100 MG, 2X/DAY
  2. XALATAN [Suspect]
     Indication: INTRAOCULAR PRESSURE INCREASED
     Dosage: 1 GTT,
     Dates: start: 20080101

REACTIONS (3)
  - OROPHARYNGEAL PAIN [None]
  - COUGH [None]
  - NASOPHARYNGITIS [None]
